FAERS Safety Report 7374718-5 (Version None)
Quarter: 2011Q1

REPORT INFORMATION
  Report Type: 
  Country: None (occurrence: None)
  Receive Date: 20110325
  Receipt Date: 20100831
  Transmission Date: 20110831
  Serious: No
  Sender: FDA-Public Use
  Company Number: US-MYLANLABS-2010S1016159

PATIENT
  Age: 57 Year
  Sex: Female

DRUGS (2)
  1. FENTANYL [Concomitant]
     Route: 048
     Dates: start: 20080101
  2. FENTANYL-100 [Suspect]
     Indication: PAIN
     Dosage: Q72H
     Route: 062
     Dates: start: 20080101

REACTIONS (3)
  - PAIN [None]
  - MUSCLE SPASMS [None]
  - DRUG INEFFECTIVE [None]
